FAERS Safety Report 5824471-9 (Version None)
Quarter: 2008Q3

REPORT INFORMATION
  Report Type: 
  Country: None (occurrence: None)
  Receive Date: 20080728
  Receipt Date: 20080725
  Transmission Date: 20090109
  Serious: Yes (Life-Threatening, Hospitalization)
  Sender: FDA-Public Use
  Company Number: B0530780A

PATIENT
  Sex: Female
  Weight: 129 kg

DRUGS (7)
  1. TOPOTECAN [Suspect]
     Dosage: 1.58MG THREE TIMES PER WEEK
     Route: 042
     Dates: start: 20080630
  2. CARBOPLATIN [Suspect]
     Dosage: 498.1MG THREE TIMES PER WEEK
     Route: 042
     Dates: start: 20080702
  3. TOREM [Concomitant]
     Indication: HYPERTENSION
     Dosage: 10MG PER DAY
     Route: 048
     Dates: start: 20060102
  4. BISOPROLOL FUMARATE [Concomitant]
     Indication: HYPERTENSION
     Dosage: 10MG PER DAY
     Route: 048
     Dates: start: 20060102
  5. LANITOP [Concomitant]
     Dosage: .1MG PER DAY
     Route: 048
     Dates: start: 20060102
  6. SPIRONOLACTONE [Concomitant]
     Indication: HYPERTENSION
     Dosage: 50MG PER DAY
     Route: 048
     Dates: start: 20060102
  7. MARCUMAR [Concomitant]
     Indication: ATRIAL FIBRILLATION
     Dosage: 3MG PER DAY
     Route: 048
     Dates: start: 20060102

REACTIONS (6)
  - ANAEMIA [None]
  - CARDIAC FAILURE [None]
  - DYSPNOEA [None]
  - GENERAL PHYSICAL HEALTH DETERIORATION [None]
  - RENAL FAILURE [None]
  - TACHYARRHYTHMIA [None]
